FAERS Safety Report 6179192-2 (Version None)
Quarter: 2009Q2

REPORT INFORMATION
  Report Type: 
  Country: None (occurrence: None)
  Receive Date: 20090505
  Receipt Date: 20090429
  Transmission Date: 20091009
  Serious: Yes (Other)
  Sender: FDA-Public Use
  Company Number: US-BAYER-200919499NA

PATIENT
  Age: 23 Year
  Sex: Female

DRUGS (1)
  1. MIRENA [Suspect]
     Indication: CONTRACEPTION
     Route: 015
     Dates: start: 20080801

REACTIONS (8)
  - ABDOMINAL PAIN LOWER [None]
  - CERVICITIS [None]
  - CERVIX INFLAMMATION [None]
  - COITAL BLEEDING [None]
  - DYSPAREUNIA [None]
  - IUD MIGRATION [None]
  - PROCEDURAL PAIN [None]
  - VAGINAL HAEMORRHAGE [None]
